FAERS Safety Report 9410171 (Version 1)
Quarter: 2013Q3

REPORT INFORMATION
  Report Type: Spontaneous
  Country: GB (occurrence: GB)
  Receive Date: 20130719
  Receipt Date: 20130719
  Transmission Date: 20140515
  Serious: Yes (Hospitalization)
  Sender: FDA-Public Use
  Company Number: GB-PFIZER INC-2013210219

PATIENT
  Age: 65 Year
  Sex: Male

DRUGS (6)
  1. CHAMPIX [Suspect]
     Indication: SMOKING CESSATION THERAPY
     Dosage: 1 MG 2X/DAY
     Route: 048
     Dates: start: 20130618, end: 20130705
  2. METFORMIN [Concomitant]
     Dosage: UNK
  3. STATINS [Concomitant]
     Dosage: UNK
  4. ADALAT [Concomitant]
     Dosage: UNK
  5. LANSOPRAZOLE [Concomitant]
     Dosage: UNK
  6. PERINDOPRIL [Concomitant]
     Dosage: UNK

REACTIONS (3)
  - Gastrooesophageal reflux disease [Not Recovered/Not Resolved]
  - Chest pain [Unknown]
  - Pain in extremity [Unknown]
